FAERS Safety Report 18751383 (Version 3)
Quarter: 2022Q1

REPORT INFORMATION
  Report Type: Spontaneous
  Country: US (occurrence: US)
  Receive Date: 20210118
  Receipt Date: 20220113
  Transmission Date: 20220423
  Serious: Yes (Hospitalization, Other)
  Sender: FDA-Public Use
  Company Number: US-PFIZER INC-2021030001

PATIENT
  Age: 73 Year
  Sex: Female

DRUGS (5)
  1. TOVIAZ [Suspect]
     Active Substance: FESOTERODINE FUMARATE
     Indication: Multiple sclerosis
     Dosage: ONE TABLET BY MOUTH DAILY
     Route: 048
  2. TOVIAZ [Suspect]
     Active Substance: FESOTERODINE FUMARATE
     Indication: Urinary incontinence
  3. TOVIAZ [Suspect]
     Active Substance: FESOTERODINE FUMARATE
     Indication: Hypertonic bladder
  4. TOVIAZ [Suspect]
     Active Substance: FESOTERODINE FUMARATE
     Indication: Mixed incontinence
  5. DDAVP [Suspect]
     Active Substance: DESMOPRESSIN ACETATE

REACTIONS (9)
  - Arterial occlusive disease [Unknown]
  - Urinary retention [Unknown]
  - Cerebrovascular accident [Unknown]
  - Gait disturbance [Unknown]
  - Constipation [Unknown]
  - Liver disorder [Unknown]
  - Urine analysis abnormal [Unknown]
  - Micturition urgency [Unknown]
  - Impaired healing [Unknown]

NARRATIVE: CASE EVENT DATE: 20201001
